FAERS Safety Report 20747880 (Version 1)
Quarter: 2022Q2

REPORT INFORMATION
  Report Type: Spontaneous
  Country: IN (occurrence: IN)
  Receive Date: 20220425
  Receipt Date: 20220425
  Transmission Date: 20220721
  Serious: Yes (Other)
  Sender: FDA-Public Use
  Company Number: IN-LUPIN PHARMACEUTICALS INC.-2022-05981

PATIENT
  Age: 77 Year
  Sex: Male

DRUGS (11)
  1. VANCOMYCIN [Suspect]
     Active Substance: VANCOMYCIN
     Indication: Endophthalmitis
     Dosage: UNK (1MG/0.1ML), INJECTION
  2. VANCOMYCIN [Suspect]
     Active Substance: VANCOMYCIN
     Indication: Staphylococcal infection
  3. CEFTAZIDIME [Suspect]
     Active Substance: CEFTAZIDIME
     Indication: Endophthalmitis
     Dosage: UNK (2.25MG/0.1ML), INJECTION
  4. CEFTAZIDIME [Suspect]
     Active Substance: CEFTAZIDIME
     Indication: Staphylococcal infection
  5. DEXAMETHASONE [Suspect]
     Active Substance: DEXAMETHASONE
     Indication: Endophthalmitis
     Dosage: UNK (0.4MG/0.1ML), INJECTION
  6. DEXAMETHASONE [Suspect]
     Active Substance: DEXAMETHASONE
     Indication: Staphylococcal infection
  7. OFLOXACIN [Concomitant]
     Active Substance: OFLOXACIN
     Indication: Antibiotic prophylaxis
     Dosage: UNK (ONE DAY PRIOR TO INJECTION AND THREE TIMES DAILY FOR FIVE DAYS AFTER INJECTION)
     Route: 061
  8. PROPARACAINE [Concomitant]
     Active Substance: PROPARACAINE
     Indication: Local anaesthesia
     Dosage: UNK
     Route: 065
  9. POVIDONE-IODINE [Concomitant]
     Active Substance: POVIDONE-IODINE
     Indication: Product used for unknown indication
     Dosage: UNK (10% SOULUTIONPUT INTO THE CONJUNCTIVAL SAC)
  10. POVIDONE-IODINE [Concomitant]
     Active Substance: POVIDONE-IODINE
     Dosage: UNK (5% DROP PUT INTO THE CONJUNCTIVAL SAC)
  11. SALINE [Concomitant]
     Active Substance: SODIUM CHLORIDE
     Indication: Product used for unknown indication
     Dosage: UNK

REACTIONS (2)
  - Drug ineffective for unapproved indication [Unknown]
  - Off label use [Unknown]
